FAERS Safety Report 4801809-2 (Version None)
Quarter: 2005Q3

REPORT INFORMATION
  Report Type: 
  Country: None (occurrence: None)
  Receive Date: 20050929
  Receipt Date: 20050706
  Transmission Date: 20060218
  Serious: Yes (Death)
  Sender: FDA-Public Use
  Company Number: 05P-163-0304852-00

PATIENT
  Age: 89 Year
  Sex: Female

DRUGS (5)
  1. HUMIRA [Suspect]
     Indication: RHEUMATOID ARTHRITIS
     Dosage: 40 MG, 1 IN 2 WK, SUBCUTANEOUS
     Route: 058
     Dates: start: 20030901
  2. DONEPEZIL HYDROCHLORIDE [Concomitant]
  3. VENLAFAXINE HYDROCHLORIDE [Concomitant]
  4. MIRTAZAPINE [Concomitant]
  5. DIAZIDE [Concomitant]

REACTIONS (1)
  - DEATH [None]
